FAERS Safety Report 14554176 (Version 1)
Quarter: 2018Q1

REPORT INFORMATION
  Report Type: Spontaneous
  Country: US (occurrence: US)
  Receive Date: 20180220
  Receipt Date: 20180220
  Transmission Date: 20180509
  Serious: Yes (Other)
  Sender: FDA-Public Use
  Company Number: US-SA-2018SA042190

PATIENT
  Age: 65 Year
  Sex: Male

DRUGS (13)
  1. JAKAFI [Suspect]
     Active Substance: RUXOLITINIB
     Indication: MYELOFIBROSIS
     Dosage: 10MG BID ALTERNATING WITH 5MG ?BID, ORAL
     Route: 048
  2. SPIRONOLACTONE. [Concomitant]
     Active Substance: SPIRONOLACTONE
  3. LORAZEPAM. [Concomitant]
     Active Substance: LORAZEPAM
  4. INDERAL [Concomitant]
     Active Substance: PROPRANOLOL HYDROCHLORIDE
  5. JAKAFI [Suspect]
     Active Substance: RUXOLITINIB
     Indication: MYELOFIBROSIS
     Dosage: DOSE 2 TABLETS QAM / 1 TABLET QPM, ?ORAL
     Route: 048
  6. NORCO [Concomitant]
     Active Substance: ACETAMINOPHEN\HYDROCODONE BITARTRATE
  7. DILANTIN [Concomitant]
     Active Substance: PHENYTOIN
  8. JAKAFI [Suspect]
     Active Substance: RUXOLITINIB
     Indication: MYELOFIBROSIS
     Dosage: 2 TABS QAM / 1 TAB QPM-THEN      1 TAB BID OTHER DAYS, ORAL
     Route: 048
     Dates: start: 20160829
  9. JAKAFI [Suspect]
     Active Substance: RUXOLITINIB
     Indication: MYELOFIBROSIS
     Dosage: 10 MG Q AM AND 5 MG Q PM, ?ALTERNATING WITH 5 MG BID, ORAL
     Route: 048
  10. JAKAFI [Suspect]
     Active Substance: RUXOLITINIB
     Indication: MYELOFIBROSIS
     Dosage: 5 MG BID ALTERNATING WITH 10 ?MG BID, ORAL
     Route: 048
  11. PHENOBARBITAL. [Concomitant]
     Active Substance: PHENOBARBITAL
  12. AMARYL [Suspect]
     Active Substance: GLIMEPIRIDE
     Route: 048
  13. FUROSEMIDE. [Concomitant]
     Active Substance: FUROSEMIDE

REACTIONS (28)
  - Heart rate irregular [Unknown]
  - Abdominal pain [Unknown]
  - Pruritus [Unknown]
  - Palpitations [Unknown]
  - Alanine aminotransferase increased [Unknown]
  - Pain [Unknown]
  - Dyspnoea [Unknown]
  - Rectal haemorrhage [Unknown]
  - Nausea [Unknown]
  - Chills [Unknown]
  - Pharyngitis [Unknown]
  - Fall [Unknown]
  - Fatigue [Not Recovered/Not Resolved]
  - Infection [Unknown]
  - Arthralgia [Unknown]
  - Muscle spasms [Unknown]
  - Muscle atrophy [Not Recovered/Not Resolved]
  - Abdominal discomfort [Unknown]
  - Asthenia [Unknown]
  - Drug effect decreased [Unknown]
  - Peripheral swelling [Unknown]
  - Haemoglobin decreased [Unknown]
  - Toothache [Unknown]
  - Platelet count decreased [Unknown]
  - Abdominal distension [Unknown]
  - Hypersomnia [Unknown]
  - Headache [Unknown]
  - Dizziness [Unknown]

NARRATIVE: CASE EVENT DATE: 201707
